FAERS Safety Report 23738633 (Version 1)
Quarter: 2024Q2

REPORT INFORMATION
  Report Type: Spontaneous
  Country: US (occurrence: US)
  Receive Date: 20240412
  Receipt Date: 20240412
  Transmission Date: 20240716
  Serious: Yes (Other)
  Sender: FDA-Public Use
  Company Number: US-STERISCIENCE B.V.-2024-ST-000394

PATIENT
  Age: 75 Year
  Sex: Male

DRUGS (5)
  1. VANCOMYCIN [Suspect]
     Active Substance: VANCOMYCIN
     Indication: Arthritis infective
     Dosage: UNK
     Route: 065
  2. PIPERACILLIN SODIUM\TAZOBACTAM SODIUM [Suspect]
     Active Substance: PIPERACILLIN SODIUM\TAZOBACTAM SODIUM
     Indication: Arthritis infective
     Dosage: UNK
     Route: 065
  3. DOXYCYCLINE [Concomitant]
     Active Substance: DOXYCYCLINE
     Indication: Antibiotic therapy
     Dosage: UNK
     Route: 065
  4. TIGECYCLINE [Concomitant]
     Active Substance: TIGECYCLINE
     Indication: Antibiotic therapy
     Dosage: UNK
     Route: 065
  5. TIGECYCLINE [Concomitant]
     Active Substance: TIGECYCLINE
     Indication: Arthritis infective

REACTIONS (3)
  - Haemolytic anaemia [Recovered/Resolved]
  - Leukopenia [Unknown]
  - Off label use [Unknown]
